FAERS Safety Report 11358344 (Version 1)
Quarter: 2015Q3

REPORT INFORMATION
  Report Type: Spontaneous
  Country: US (occurrence: US)
  Receive Date: 20150803
  Receipt Date: 20150803
  Transmission Date: 20151125
  Serious: No
  Sender: FDA-Public Use
  Company Number: US-ELI_LILLY_AND_COMPANY-US200710001013

PATIENT
  Age: 3 Year
  Sex: Male

DRUGS (3)
  1. STRATTERA [Suspect]
     Active Substance: ATOMOXETINE HYDROCHLORIDE
     Dosage: 18 MG, DAILY (1/D)
     Dates: start: 2007
  2. ADDERALL [Concomitant]
     Active Substance: AMPHETAMINE ASPARTATE\AMPHETAMINE SULFATE\DEXTROAMPHETAMINE SACCHARATE\DEXTROAMPHETAMINE SULFATE
  3. STRATTERA [Suspect]
     Active Substance: ATOMOXETINE HYDROCHLORIDE
     Indication: ATTENTION DEFICIT/HYPERACTIVITY DISORDER
     Dosage: 10 MG, DAILY (1/D)
     Dates: start: 20070927, end: 200709

REACTIONS (4)
  - Somnolence [Recovered/Resolved]
  - Drug ineffective [Recovered/Resolved]
  - Posture abnormal [Recovered/Resolved]
  - Prescribed overdose [Not Recovered/Not Resolved]

NARRATIVE: CASE EVENT DATE: 2007
